FAERS Safety Report 11812242 (Version 1)
Quarter: 2015Q4

REPORT INFORMATION
  Report Type: Spontaneous
  Country: BR (occurrence: BR)
  Receive Date: 20151208
  Receipt Date: 20151208
  Transmission Date: 20160305
  Serious: Yes (Hospitalization)
  Sender: FDA-Public Use
  Company Number: PHHY2015BR157740

PATIENT
  Age: 87 Year
  Sex: Male

DRUGS (1)
  1. NEOTIAPIM [Suspect]
     Active Substance: QUETIAPINE
     Indication: DEMENTIA ALZHEIMER^S TYPE
     Route: 065

REACTIONS (4)
  - Memory impairment [Unknown]
  - Drug administration error [Unknown]
  - Depressed mood [Unknown]
  - Hearing impaired [Unknown]
